FAERS Safety Report 12589923 (Version 1)
Quarter: 2016Q3

REPORT INFORMATION
  Report Type: Spontaneous
  Country: US (occurrence: US)
  Receive Date: 20160725
  Receipt Date: 20160725
  Transmission Date: 20161109
  Serious: No
  Sender: FDA-Public Use
  Company Number: US-ENDO PHARMACEUTICALS INC.-2015-002853

PATIENT
  Age: 47 Year
  Sex: Female
  Weight: 54.48 kg

DRUGS (4)
  1. HYDROCORTISONE TABLETS 10MG [Suspect]
     Active Substance: HYDROCORTISONE
     Route: 048
     Dates: start: 201502, end: 201503
  2. HYDROCORTISONE TABLETS 10MG [Suspect]
     Active Substance: HYDROCORTISONE
     Route: 048
     Dates: start: 201412, end: 201502
  3. HYDROCORTISONE TABLETS 10MG [Suspect]
     Active Substance: HYDROCORTISONE
     Indication: ADDISON^S DISEASE
     Dosage: 15-25 MG PER DAY AS NEEDED
     Route: 048
     Dates: start: 201503
  4. LEVOTHYROXINE. [Concomitant]
     Active Substance: LEVOTHYROXINE
     Indication: HYPOTHYROIDISM

REACTIONS (4)
  - Nausea [Recovering/Resolving]
  - Abdominal distension [Not Recovered/Not Resolved]
  - Abdominal pain [Not Recovered/Not Resolved]
  - Flatulence [Not Recovered/Not Resolved]

NARRATIVE: CASE EVENT DATE: 201502
